FAERS Safety Report 5788998-0 (Version None)
Quarter: 2008Q2

REPORT INFORMATION
  Report Type: 
  Country: None (occurrence: None)
  Receive Date: 20080626
  Receipt Date: 20080617
  Transmission Date: 20081010
  Serious: Yes (Death, Life-Threatening, Other)
  Sender: FDA-Public Use
  Company Number: GB-JNJFOC-20080305855

PATIENT
  Sex: Female
  Weight: 62 kg

DRUGS (8)
  1. REMICADE [Suspect]
     Indication: RHEUMATOID ARTHRITIS
     Route: 042
  2. AZATHIOPRINE [Concomitant]
  3. ACETAMINOPHEN W/ CODEINE [Concomitant]
  4. PAMIDRONATE DISODIUM [Concomitant]
  5. LERCANIDIPINE [Concomitant]
  6. CALCICHEW [Concomitant]
  7. RANITIDINE HCL [Concomitant]
  8. PREDNISOLONE [Concomitant]

REACTIONS (3)
  - DEMENTIA [None]
  - GENERAL PHYSICAL HEALTH DETERIORATION [None]
  - URINARY TRACT INFECTION [None]
